FAERS Safety Report 21141279 (Version 2)
Quarter: 2022Q3

REPORT INFORMATION
  Report Type: Spontaneous
  Country: FR (occurrence: FR)
  Receive Date: 20220728
  Receipt Date: 20220728
  Transmission Date: 20221027
  Serious: Yes (Life-Threatening, Other)
  Sender: FDA-Public Use
  Company Number: FR-PFIZER INC-PV202200027781

PATIENT
  Age: 65 Year
  Sex: Female

DRUGS (5)
  1. CARBOPLATIN [Suspect]
     Active Substance: CARBOPLATIN
     Indication: Ovarian cancer stage III
     Dosage: 100 MG, CYCLE 1: C: AUC = 4, SIX CYCLES (EVERY 28 DAYS)
     Route: 042
  2. CARBOPLATIN [Suspect]
     Active Substance: CARBOPLATIN
     Dosage: 150 MG, CYCLE 2-6: AUC = 6 SIX CYCLES (EVERY 28 DAYS)
     Route: 042
  3. CYCLOPHOSPHAMIDE [Suspect]
     Active Substance: CYCLOPHOSPHAMIDE
     Indication: Ovarian cancer stage III
     Dosage: 600 MG/M2, CYCLIC, SEVENTEEN HOURS AFTER CARBOPLATIN ADMINISTRATION
     Route: 042
  4. DEXTROSE [Concomitant]
     Active Substance: DEXTROSE
     Dosage: 500 ML; 5%
  5. DEXTROSE [Concomitant]
     Active Substance: DEXTROSE
     Dosage: 250 ML; 5%

REACTIONS (5)
  - Thrombocytopenia [Unknown]
  - Neutropenia [Unknown]
  - Staphylococcal sepsis [Unknown]
  - Bone marrow failure [Unknown]
  - Infection [Unknown]
